FAERS Safety Report 6241745-0 (Version None)
Quarter: 2009Q2

REPORT INFORMATION
  Report Type: 
  Country: None (occurrence: None)
  Receive Date: 20090623
  Receipt Date: 20061128
  Transmission Date: 20091009
  Serious: Yes (Other)
  Sender: FDA-Public Use
  Company Number: GB-ROCHE-461763

PATIENT
  Age: 65 Year
  Sex: Male

DRUGS (3)
  1. MYCOPHENOLATE MOFETIL [Suspect]
     Route: 065
  2. PROGRAF [Suspect]
     Route: 065
  3. PREDNISOLONE [Suspect]
     Route: 065

REACTIONS (2)
  - BASAL CELL CARCINOMA [None]
  - COMPLICATIONS OF TRANSPLANTED KIDNEY [None]
